FAERS Safety Report 14337449 (Version 1)
Quarter: 2017Q4

REPORT INFORMATION
  Report Type: Spontaneous
  Country: US (occurrence: US)
  Receive Date: 20171228
  Receipt Date: 20171228
  Transmission Date: 20180321
  Serious: Yes (Hospitalization)
  Sender: FDA-Public Use
  Company Number: None

PATIENT
  Age: 5 Year
  Sex: Male
  Weight: 19.4 kg

DRUGS (1)
  1. METHOTREXATE. [Suspect]
     Active Substance: METHOTREXATE
     Dates: end: 20171101

REACTIONS (5)
  - Tremor [None]
  - Condition aggravated [None]
  - Leukoencephalopathy [None]
  - Nuclear magnetic resonance imaging brain abnormal [None]
  - Abnormal behaviour [None]

NARRATIVE: CASE EVENT DATE: 20171116
